FAERS Safety Report 13804631 (Version 1)
Quarter: 2017Q3

REPORT INFORMATION
  Report Type: Spontaneous
  Country: RU (occurrence: RU)
  Receive Date: 20170728
  Receipt Date: 20170728
  Transmission Date: 20171127
  Serious: Yes (Hospitalization)
  Sender: FDA-Public Use
  Company Number: RU-ASTRAZENECA-2017SE74888

PATIENT
  Age: 80 Year
  Sex: Male
  Weight: 85 kg

DRUGS (5)
  1. BRILINTA [Suspect]
     Active Substance: TICAGRELOR
     Indication: MYOCARDIAL INFARCTION
     Route: 048
     Dates: start: 201501, end: 201701
  2. TRIAMPUR [Concomitant]
     Active Substance: HYDROCHLOROTHIAZIDE\TRIAMTERENE
  3. ALLOPURINOL. [Concomitant]
     Active Substance: ALLOPURINOL
  4. CARDIOMAGNYL [Concomitant]
     Active Substance: ASPIRIN\MAGNESIUM HYDROXIDE
  5. CARVEDILOL. [Concomitant]
     Active Substance: CARVEDILOL

REACTIONS (5)
  - Gastric cancer [Unknown]
  - Off label use [Unknown]
  - Product use issue [Unknown]
  - Haemoglobin decreased [Unknown]
  - Gastric haemorrhage [Recovered/Resolved]
